FAERS Safety Report 6910767 (Version 3)
Quarter: 2020Q3

REPORT INFORMATION
  Report Type: Report from Study
  Country: US (occurrence: US)
  Receive Date: 20090217
  Receipt Date: 20091127
  Transmission Date: 20201105
  Serious: Yes (Death)
  Sender: FDA-Public Use
  Company Number: US-JNJFOC-20090203629

PATIENT
  Age: 65 Year
  Sex: Male
  Weight: 83 kg

DRUGS (22)
  1. TAPENTADOL [Suspect]
     Active Substance: TAPENTADOL
     Dosage: 100 MG PLUS 150 MG
     Route: 048
  2. VIAGRA [Concomitant]
     Active Substance: SILDENAFIL CITRATE
  3. TAPENTADOL [Suspect]
     Active Substance: TAPENTADOL
     Route: 048
  4. CLONAZEPAM. [Concomitant]
     Active Substance: CLONAZEPAM
     Indication: PANIC DISORDER
  5. TAPENTADOL [Suspect]
     Active Substance: TAPENTADOL
     Route: 048
  6. KLONOPIN [Concomitant]
     Active Substance: CLONAZEPAM
  7. NORCO [Concomitant]
     Active Substance: ACETAMINOPHEN\HYDROCODONE BITARTRATE
  8. TAPENTADOL [Suspect]
     Active Substance: TAPENTADOL
     Route: 048
  9. TAPENTADOL [Suspect]
     Active Substance: TAPENTADOL
     Dosage: 50 MG PLUS 100 MG
     Route: 048
  10. LIPITOR [Concomitant]
     Active Substance: ATORVASTATIN CALCIUM
     Indication: HYPERCHOLESTEROLAEMIA
  11. TRAZODONE HYDROCHLORIDE. [Concomitant]
     Active Substance: TRAZODONE HYDROCHLORIDE
  12. TAPENTADOL [Suspect]
     Active Substance: TAPENTADOL
     Route: 048
  13. ASPIRIN. [Concomitant]
     Active Substance: ASPIRIN
     Indication: PROPHYLAXIS
  14. METAMUCIL [Concomitant]
     Active Substance: PLANTAGO SEED
     Indication: CONSTIPATION
  15. OXYCODONE [Concomitant]
     Active Substance: OXYCODONE
  16. RANITIDINE. [Concomitant]
     Active Substance: RANITIDINE
     Indication: GASTROOESOPHAGEAL REFLUX DISEASE
  17. LEXAPRO [Concomitant]
     Active Substance: ESCITALOPRAM OXALATE
  18. LORAZEPAM. [Concomitant]
     Active Substance: LORAZEPAM
  19. TAPENTADOL [Suspect]
     Active Substance: TAPENTADOL
     Indication: PAIN
     Route: 048
  20. BENICAR [Concomitant]
     Active Substance: OLMESARTAN MEDOXOMIL
     Indication: HYPERTENSION
  21. HYDROCODONE [Concomitant]
     Active Substance: HYDROCODONE
  22. IBUPROFEN. [Concomitant]
     Active Substance: IBUPROFEN

REACTIONS (1)
  - Completed suicide [Fatal]

NARRATIVE: CASE EVENT DATE: 20080619
